FAERS Safety Report 20691401 (Version 1)
Quarter: 2022Q2

REPORT INFORMATION
  Report Type: Spontaneous
  Country: US (occurrence: None)
  Receive Date: 20220406
  Receipt Date: 20220406
  Transmission Date: 20220720
  Serious: Yes (Hospitalization)
  Sender: FDA-Public Use
  Company Number: None

PATIENT
  Age: 76 Year
  Sex: Female
  Weight: 125.2 kg

DRUGS (18)
  1. EVEROLIMUS [Suspect]
     Active Substance: EVEROLIMUS
     Indication: Breast cancer female
     Dosage: FREQUENCY : DAILY;?
     Route: 048
     Dates: start: 20220217
  2. EXEMESTANE [Suspect]
     Active Substance: EXEMESTANE
     Indication: Breast cancer female
     Dosage: FREQUENCY : DAILY;?
     Route: 048
     Dates: start: 20220217
  3. ACETAMIOPHEN [Concomitant]
  4. AROMASIN [Concomitant]
     Active Substance: EXEMESTANE
  5. ASCORBIC ACID [Concomitant]
     Active Substance: ASCORBIC ACID
  6. ASPIRIN [Concomitant]
     Active Substance: ASPIRIN
  7. CALTRATE [Concomitant]
     Active Substance: CALCIUM CARBONATE
  8. COZAAR [Concomitant]
     Active Substance: LOSARTAN POTASSIUM
  9. DEXAMETHASONE [Concomitant]
     Active Substance: DEXAMETHASONE
  10. DIPHENHYDRAMINE [Concomitant]
     Active Substance: DIPHENHYDRAMINE
  11. KENALOG [Concomitant]
     Active Substance: TRIAMCINOLONE ACETONIDE
  12. LIDOCAINE [Concomitant]
     Active Substance: LIDOCAINE
  13. MEGACE [Concomitant]
     Active Substance: MEGESTROL ACETATE
  14. VITAMINS [Concomitant]
     Active Substance: VITAMINS
  15. NORVASC [Concomitant]
     Active Substance: AMLODIPINE BESYLATE
  16. NYSTATIN [Concomitant]
     Active Substance: NYSTATIN
  17. POTASSIUM CHLORIDE [Concomitant]
     Active Substance: POTASSIUM CHLORIDE
  18. XGEVA [Concomitant]
     Active Substance: DENOSUMAB

REACTIONS (1)
  - Pneumonia [None]

NARRATIVE: CASE EVENT DATE: 20220404
